FAERS Safety Report 7277483-5 (Version None)
Quarter: 2011Q1

REPORT INFORMATION
  Report Type: 
  Country: None (occurrence: None)
  Receive Date: 20110207
  Receipt Date: 20110124
  Transmission Date: 20110831
  Serious: Yes (Hospitalization)
  Sender: FDA-Public Use
  Company Number: US-ELI_LILLY_AND_COMPANY-US201012001654

PATIENT
  Sex: Female

DRUGS (1)
  1. FORTEO [Suspect]
     Indication: OSTEOPOROSIS
     Dosage: 600MEQ/2.4, DAILY (1/D)
     Route: 058

REACTIONS (3)
  - HEART RATE IRREGULAR [None]
  - PULMONARY CONGESTION [None]
  - PNEUMONIA [None]
